FAERS Safety Report 8588126 (Version 3)
Quarter: 2016Q1

REPORT INFORMATION
  Report Type: Spontaneous
  Country: US (occurrence: US)
  Receive Date: 20120531
  Receipt Date: 20160108
  Transmission Date: 20160526
  Serious: Yes (Other)
  Sender: FDA-Public Use
  Company Number: US-BAYER-2012-051579

PATIENT
  Age: 28 Year
  Sex: Female

DRUGS (4)
  1. YASMIN [Suspect]
     Active Substance: DROSPIRENONE\ETHINYL ESTRADIOL
     Dosage: UNK
  2. MEDROL [Concomitant]
     Active Substance: METHYLPREDNISOLONE
  3. AMOXICILLIN. [Concomitant]
     Active Substance: AMOXICILLIN
     Dosage: 500 MG, UNK
  4. BEXTRA [Concomitant]
     Active Substance: VALDECOXIB
     Dosage: 20 MG, UNK
     Route: 048

REACTIONS (2)
  - Cerebral infarction [None]
  - Embolism arterial [None]
